FAERS Safety Report 10589904 (Version 1)
Quarter: 2014Q4

REPORT INFORMATION
  Report Type: Spontaneous
  Country: US (occurrence: US)
  Receive Date: 20141118
  Receipt Date: 20141118
  Transmission Date: 20150529
  Serious: Yes (Other)
  Sender: FDA-Public Use
  Company Number: US-JNJFOC-20141108830

PATIENT
  Sex: Male
  Weight: 104.33 kg

DRUGS (1)
  1. INVEGA SUSTENNA [Suspect]
     Active Substance: PALIPERIDONE PALMITATE
     Indication: SCHIZOPHRENIA
     Route: 030
     Dates: start: 2013

REACTIONS (4)
  - Liver function test abnormal [Unknown]
  - Hyponatraemia [Unknown]
  - Hypokalaemia [Unknown]
  - Inappropriate schedule of drug administration [Unknown]
